FAERS Safety Report 16121759 (Version 1)
Quarter: 2019Q2

REPORT INFORMATION
  Report Type: Spontaneous
  Country: US (occurrence: US)
  Receive Date: 20190326
  Receipt Date: 20190326
  Transmission Date: 20190711
  Serious: No
  Sender: FDA-Public Use
  Company Number: None

PATIENT
  Age: 16 Year
  Sex: Female
  Weight: 57.15 kg

DRUGS (1)
  1. LATUDA [Suspect]
     Active Substance: LURASIDONE HYDROCHLORIDE
     Dosage: ?          OTHER FREQUENCY:Q 17:00 W/ DINNER;?
     Route: 048
     Dates: start: 20181025, end: 20181027

REACTIONS (1)
  - Dizziness [None]

NARRATIVE: CASE EVENT DATE: 20181029
